FAERS Safety Report 5751046-2 (Version None)
Quarter: 2008Q2

REPORT INFORMATION
  Report Type: 
  Country: None (occurrence: None)
  Receive Date: 20080528
  Receipt Date: 20080522
  Transmission Date: 20081010
  Serious: Yes (Disabling)
  Sender: FDA-Public Use
  Company Number: FR-AVENTIS-200811863FR

PATIENT
  Age: 44 Year
  Sex: Female

DRUGS (11)
  1. TAXOTERE [Suspect]
     Indication: BREAST CANCER
     Route: 042
     Dates: start: 20070725, end: 20071113
  2. NEULASTA [Suspect]
     Route: 058
  3. ENDOXAN [Suspect]
     Indication: BREAST CANCER
     Route: 042
     Dates: start: 20070725, end: 20071113
  4. POLARAMINE                         /00043702/ [Suspect]
     Route: 042
  5. TAMOXIFEN CITRATE [Suspect]
     Indication: BREAST CANCER
     Dates: start: 20080215
  6. FARMORUBICINE                      /00699301/ [Suspect]
     Indication: BREAST CANCER
     Route: 042
     Dates: start: 20070725, end: 20071113
  7. ZOPHREN                            /00955301/ [Suspect]
  8. OSMOTAN [Suspect]
  9. PRIMPERAN                          /00041901/ [Suspect]
  10. SOLU-MEDROL [Suspect]
  11. HERCEPTIN [Suspect]
     Indication: BREAST CANCER
     Route: 042
     Dates: start: 20080218, end: 20080312

REACTIONS (1)
  - HYPOTHYROIDISM [None]
